FAERS Safety Report 8854830 (Version 1)
Quarter: 2012Q4

REPORT INFORMATION
  Report Type: 
  Country: AU (occurrence: AU)
  Receive Date: 20121023
  Receipt Date: 20121023
  Transmission Date: 20130627
  Serious: Yes (Other)
  Sender: FDA-Public Use
  Company Number: AU-UCBSA-068818

PATIENT

DRUGS (1)
  1. XYZAL [Suspect]

REACTIONS (10)
  - Hypersensitivity [Unknown]
  - Swelling [Unknown]
  - Nasopharyngitis [Unknown]
  - Pyrexia [Unknown]
  - Cough [Unknown]
  - Oropharyngeal pain [Unknown]
  - Dry mouth [Unknown]
  - Epistaxis [Unknown]
  - Somnolence [Unknown]
  - Fatigue [Unknown]
